FAERS Safety Report 9771727 (Version 1)
Quarter: 2013Q4

REPORT INFORMATION
  Report Type: Report from Study
  Country: JP (occurrence: JP)
  Receive Date: 20131219
  Receipt Date: 20131219
  Transmission Date: 20140711
  Serious: Yes (Other)
  Sender: FDA-Public Use
  Company Number: JP-ROCHE-1316602

PATIENT
  Sex: 0

DRUGS (3)
  1. RIBAVIRIN [Suspect]
     Indication: HEPATIC CIRRHOSIS
     Route: 065
  2. TELAPREVIR [Suspect]
     Indication: HEPATIC CIRRHOSIS
     Route: 065
  3. PEGINTERFERON ALFA-2B [Suspect]
     Indication: HEPATIC CIRRHOSIS
     Route: 065

REACTIONS (3)
  - Renal impairment [Unknown]
  - Anaemia [Unknown]
  - Infection [Unknown]
